FAERS Safety Report 4335997-1 (Version None)
Quarter: 2004Q2

REPORT INFORMATION
  Report Type: 
  Country: None (occurrence: None)
  Receive Date: 20040406
  Receipt Date: 20040324
  Transmission Date: 20050107
  Serious: Yes (Other)
  Sender: FDA-Public Use
  Company Number: 2004019915

PATIENT
  Age: 55 Year
  Sex: Male

DRUGS (4)
  1. NIFEDIPINE [Suspect]
     Indication: ANGINA PECTORIS
     Dosage: 80 MG, ORAL
     Route: 048
  2. NITROGLYCERIN [Suspect]
     Indication: CHEST PAIN
     Dosage: SUBLINGUAL
     Route: 060
  3. ISOSORBIDE DINITRATE [Concomitant]
  4. DILTIAZEM [Concomitant]

REACTIONS (5)
  - ANGINA PECTORIS [None]
  - ASTHMA [None]
  - CHEST PAIN [None]
  - DISEASE RECURRENCE [None]
  - ELECTROCARDIOGRAM ST SEGMENT ELEVATION [None]
